FAERS Safety Report 7674353-5 (Version None)
Quarter: 2011Q3

REPORT INFORMATION
  Report Type: 
  Country: None (occurrence: None)
  Receive Date: 20110810
  Receipt Date: 20110804
  Transmission Date: 20111222
  Serious: Yes (Hospitalization)
  Sender: FDA-Public Use
  Company Number: NO-PFIZER INC-2011178382

PATIENT
  Age: 53 Year
  Sex: Female

DRUGS (2)
  1. ONDANSERTRON HYDROCHLORIDE [Suspect]
     Indication: NAUSEA
     Dosage: 8 MG, UNK
     Route: 042
     Dates: start: 20110701
  2. XELODA [Concomitant]
     Indication: RECTAL CANCER

REACTIONS (3)
  - HYPERTONIA [None]
  - DYSTONIA [None]
  - MUSCLE SPASMS [None]
